FAERS Safety Report 4588158-5 (Version None)
Quarter: 2005Q1

REPORT INFORMATION
  Report Type: 
  Country: None (occurrence: None)
  Receive Date: 20050221
  Receipt Date: 20050209
  Transmission Date: 20050727
  Serious: Yes (Other)
  Sender: FDA-Public Use
  Company Number: PHBS2005BE02071

PATIENT

DRUGS (3)
  1. RADIOTHERAPY [Suspect]
  2. CHEMOTHERAPEUTICS,OTHER [Suspect]
  3. GLEEVEC [Suspect]
     Indication: OESOPHAGEAL SQUAMOUS CELL CARCINOMA
     Route: 048

REACTIONS (2)
  - FIBROSIS [None]
  - RADIATION MUCOSITIS [None]
